FAERS Safety Report 6284472-6 (Version None)
Quarter: 2009Q3

REPORT INFORMATION
  Report Type: 
  Country: None (occurrence: None)
  Receive Date: 20090727
  Receipt Date: 20090714
  Transmission Date: 20100115
  Serious: Yes (Other)
  Sender: FDA-Public Use
  Company Number: NL-AMGEN-UK347682

PATIENT
  Sex: Male
  Weight: 77 kg

DRUGS (1)
  1. VECTIBIX [Suspect]
     Indication: COLORECTAL CANCER
     Route: 042
     Dates: start: 20090123

REACTIONS (6)
  - DERMATITIS ACNEIFORM [None]
  - ERYTHEMA [None]
  - PAIN OF SKIN [None]
  - PARONYCHIA [None]
  - SKIN FISSURES [None]
  - SKIN HAEMORRHAGE [None]
